FAERS Safety Report 16903126 (Version 1)
Quarter: 2019Q4

REPORT INFORMATION
  Report Type: Spontaneous
  Country: US (occurrence: US)
  Receive Date: 20191010
  Receipt Date: 20191010
  Transmission Date: 20200122
  Serious: Yes (Hospitalization)
  Sender: FDA-Public Use
  Company Number: US-MYLANLABS-2019M1094236

PATIENT
  Sex: Female

DRUGS (2)
  1. LIDOCAINE. [Suspect]
     Active Substance: LIDOCAINE
     Indication: PRODUCT USED FOR UNKNOWN INDICATION
     Route: 065
  2. MAGNESIUM [Suspect]
     Active Substance: MAGNESIUM
     Indication: PRODUCT USED FOR UNKNOWN INDICATION
     Dosage: EPIDURAL INFUSION VIA CATHETER
     Route: 008

REACTIONS (6)
  - Maternal exposure during delivery [Recovered/Resolved]
  - Wrong product administered [Unknown]
  - Burning sensation [Recovered/Resolved]
  - Incorrect route of product administration [Unknown]
  - Pain [Recovered/Resolved]
  - Diplegia [Recovered/Resolved]
